FAERS Safety Report 14625839 (Version 2)
Quarter: 2018Q2

REPORT INFORMATION
  Report Type: Spontaneous
  Country: US (occurrence: US)
  Receive Date: 20180312
  Receipt Date: 20180529
  Transmission Date: 20180711
  Serious: Yes (Hospitalization, Other)
  Sender: FDA-Public Use
  Company Number: US-BAYER-2018-045301

PATIENT
  Age: 63 Year
  Sex: Female
  Weight: 146.3 kg

DRUGS (5)
  1. VITAMIN D [Concomitant]
     Active Substance: CHOLECALCIFEROL
     Indication: POSTMENOPAUSAL HAEMORRHAGE
  2. XARELTO [Concomitant]
     Active Substance: RIVAROXABAN
     Indication: PULMONARY EMBOLISM
  3. CELEXA [Concomitant]
     Active Substance: CITALOPRAM HYDROBROMIDE
  4. MIRENA [Suspect]
     Active Substance: LEVONORGESTREL
     Dosage: 20 MCG/24HR, CONT
     Route: 015
     Dates: start: 20170203, end: 20180322
  5. LISINOPRIL. [Concomitant]
     Active Substance: LISINOPRIL

REACTIONS (6)
  - Menstrual disorder [None]
  - Off label use of device [None]
  - Abdominal pain lower [None]
  - Postmenopausal haemorrhage [Not Recovered/Not Resolved]
  - Endometrial hypertrophy [None]
  - Ovarian cyst [None]

NARRATIVE: CASE EVENT DATE: 20170609
